FAERS Safety Report 8733204 (Version 3)
Quarter: 2012Q4

REPORT INFORMATION
  Report Type: 
  Country: US (occurrence: US)
  Receive Date: 20120821
  Receipt Date: 20120903
  Transmission Date: 20130627
  Serious: Yes (Hospitalization)
  Sender: FDA-Public Use
  Company Number: US-BIOGENIDEC-2012BI031315

PATIENT
  Age: 49 Year
  Sex: Female

DRUGS (8)
  1. TYSABRI [Suspect]
     Indication: MULTIPLE SCLEROSIS
     Route: 042
     Dates: start: 20100126
  2. AVONEX [Concomitant]
     Indication: MULTIPLE SCLEROSIS
  3. PERCOCET [Concomitant]
  4. VALIUM [Concomitant]
  5. DETROL [Concomitant]
  6. NEURONTIN [Concomitant]
  7. BACLOFEN [Concomitant]
  8. ZANAFLEX [Concomitant]

REACTIONS (1)
  - Adhesion [Recovered/Resolved]
